FAERS Safety Report 4570293-9 (Version None)
Quarter: 2005Q1

REPORT INFORMATION
  Report Type: 
  Country: None (occurrence: None)
  Receive Date: 20050127
  Receipt Date: 20050127
  Transmission Date: 20050727
  Serious: Yes (Death, Life-Threatening, Hospitalization)
  Sender: FDA-Public Use
  Company Number: None

PATIENT
  Age: 80 Year
  Sex: Female
  Weight: 49.9 kg

DRUGS (21)
  1. DIGOXIN [Suspect]
  2. METOPROLOL TAB [Concomitant]
  3. CALCIUM/VITAMIN D TAB [Concomitant]
  4. CAPTOPRIL [Concomitant]
  5. ALLOPURINOL TAB [Concomitant]
  6. IRON (NIFEREX) CAP [Concomitant]
  7. IPRATROPIUM/ALBUTEROL INHALER [Concomitant]
  8. ACETAMINOPHEN TAB [Concomitant]
  9. TEQUIN [Concomitant]
  10. HYDROXYZINE [Concomitant]
  11. TRIMETHOPRIM + SULFAMETHOXAZOLE [Concomitant]
  12. SENNA TABLET [Concomitant]
  13. PREDNISONE [Concomitant]
  14. OMEPRAZOLE [Concomitant]
  15. METOPROLOL [Concomitant]
  16. LEVOTHYROXINE [Concomitant]
  17. IRON [Concomitant]
  18. FUROSEMIDE [Concomitant]
  19. DIGOXIN [Concomitant]
  20. CALCIUM VITAMIN D [Concomitant]
  21. ALLOPURINOL [Concomitant]

REACTIONS (1)
  - HEART RATE INCREASED [None]
